FAERS Safety Report 5447545-3 (Version None)
Quarter: 2007Q3

REPORT INFORMATION
  Report Type: 
  Country: None (occurrence: None)
  Receive Date: 20070905
  Receipt Date: 20070905
  Transmission Date: 20080115
  Serious: Yes (Hospitalization, Other)
  Sender: FDA-Public Use
  Company Number: None

PATIENT
  Age: 33 Year
  Sex: Male

DRUGS (1)
  1. IMIPENEM AND CILASTATIN SODIUM [Suspect]
     Indication: BACTERIAL INFECTION
     Dosage: 500 MG EVERY 6 HOURS IV
     Route: 042
     Dates: start: 20070629, end: 20070629

REACTIONS (5)
  - AGITATION [None]
  - CONFUSIONAL STATE [None]
  - DYSKINESIA [None]
  - GRAND MAL CONVULSION [None]
  - MENTAL STATUS CHANGES [None]
